FAERS Safety Report 20720550 (Version 1)
Quarter: 2022Q2

REPORT INFORMATION
  Report Type: Spontaneous
  Country: US (occurrence: US)
  Receive Date: 20220418
  Receipt Date: 20220418
  Transmission Date: 20220720
  Serious: Yes (Other)
  Sender: FDA-Public Use
  Company Number: US-SA-SAC20220414001820

PATIENT
  Age: 84 Year
  Sex: Male

DRUGS (1)
  1. ZANTAC [Suspect]
     Active Substance: RANITIDINE HYDROCHLORIDE
     Indication: Dyspepsia
     Dosage: UNK, QW (UNKNOWN AT THIS TIME)
     Dates: start: 200803, end: 201701

REACTIONS (2)
  - Hepatic cancer stage IV [Unknown]
  - Gastric cancer stage IV [Unknown]

NARRATIVE: CASE EVENT DATE: 20200101
